FAERS Safety Report 7340848-7 (Version None)
Quarter: 2011Q1

REPORT INFORMATION
  Report Type: 
  Country: None (occurrence: None)
  Receive Date: 20110309
  Receipt Date: 20110223
  Transmission Date: 20110831
  Serious: Yes (Other)
  Sender: FDA-Public Use
  Company Number: DE-ALEXION-A201001660

PATIENT
  Sex: Female

DRUGS (6)
  1. SOLIRIS [Suspect]
     Indication: PAROXYSMAL NOCTURNAL HAEMOGLOBINURIA
     Dosage: 600 MG, QW
     Route: 042
     Dates: start: 20101212
  2. PREDNISOLON                        /00016201/ [Concomitant]
     Indication: PAROXYSMAL NOCTURNAL HAEMOGLOBINURIA
     Dosage: 5 MG, UNK
     Route: 048
  3. LEVOTHYROXINE SODIUM [Concomitant]
     Indication: HYPOTHYROIDISM
     Dosage: 150 UG, UNK
     Route: 048
  4. MENINGOCOCCAL A AND C VACCINE [Concomitant]
     Indication: IMMUNISATION
     Dosage: UNK
     Dates: start: 20100114, end: 20100114
  5. CALCITROL                          /00508501/ [Concomitant]
     Indication: HYPOPARATHYROIDISM
     Dosage: 0.25 MG, UNK
     Route: 048
  6. CALCIUM [Concomitant]
     Indication: HYPOPARATHYROIDISM
     Dosage: 600 MG, UNK
     Route: 048

REACTIONS (7)
  - JOINT STIFFNESS [None]
  - PALLOR [None]
  - HYPERHIDROSIS [None]
  - PARAESTHESIA [None]
  - HYPERVENTILATION [None]
  - SPEECH DISORDER [None]
  - ASTHENIA [None]
